FAERS Safety Report 8172859-6 (Version None)
Quarter: 2012Q1

REPORT INFORMATION
  Report Type: 
  Country: None (occurrence: None)
  Receive Date: 20120229
  Receipt Date: 20120223
  Transmission Date: 20120608
  Serious: Yes (Hospitalization)
  Sender: FDA-Public Use
  Company Number: BE-ABBOTT-12P-013-0900908-00

PATIENT
  Sex: Female

DRUGS (8)
  1. BISOPROLOL FUMARATE [Concomitant]
     Indication: PRODUCT USED FOR UNKNOWN INDICATION
  2. OMEPRAZOLE [Concomitant]
     Indication: PRODUCT USED FOR UNKNOWN INDICATION
  3. VASEXTEN [Concomitant]
     Indication: PRODUCT USED FOR UNKNOWN INDICATION
  4. HUMIRA [Suspect]
     Indication: PSORIASIS
     Dates: start: 20090101, end: 20111215
  5. SPIRIVA [Concomitant]
     Indication: PRODUCT USED FOR UNKNOWN INDICATION
  6. MOTILIUM [Concomitant]
     Indication: PRODUCT USED FOR UNKNOWN INDICATION
  7. LEVOTHYROXINE SODIUM [Concomitant]
     Indication: PRODUCT USED FOR UNKNOWN INDICATION
  8. PAROXETINE HCL [Concomitant]
     Indication: PRODUCT USED FOR UNKNOWN INDICATION

REACTIONS (2)
  - MYCOBACTERIUM TUBERCULOSIS COMPLEX TEST POSITIVE [None]
  - BRONCHITIS CHRONIC [None]
